FAERS Safety Report 8485705-8 (Version None)
Quarter: 2012Q3

REPORT INFORMATION
  Report Type: 
  Country: None (occurrence: None)
  Receive Date: 20120703
  Receipt Date: 20120606
  Transmission Date: 20120928
  Serious: No
  Sender: FDA-Public Use
  Company Number: US-ASTRAZENECA-2011SE49893

PATIENT
  Age: 61 Year
  Sex: Female

DRUGS (11)
  1. SEROQUEL [Suspect]
     Route: 048
     Dates: start: 20110814
  2. METFORMIN HCL [Concomitant]
     Indication: DIABETES MELLITUS
     Dosage: DAILY
     Route: 048
  3. SEROQUEL [Suspect]
     Indication: DEPRESSION
     Route: 048
     Dates: end: 20110814
  4. SIMVASTATIN [Concomitant]
     Indication: HYPERCHOLESTEROLAEMIA
     Dosage: DAILY
     Route: 048
  5. SEROQUEL [Suspect]
     Indication: INSOMNIA
     Route: 048
     Dates: end: 20110814
  6. SEROQUEL [Suspect]
     Route: 048
  7. CYMBALTA [Concomitant]
     Indication: DEPRESSION
     Dosage: DAILY
     Route: 048
  8. SEROQUEL [Suspect]
     Route: 048
  9. CLINOPRIL [Concomitant]
     Indication: HYPERTENSION
     Dosage: DAILY
     Route: 048
  10. SEROQUEL [Suspect]
     Route: 048
     Dates: start: 20110814
  11. GABAPENTIN [Concomitant]
     Indication: FIBROMYALGIA
     Dosage: DAILY
     Route: 048

REACTIONS (5)
  - DRUG EFFECT DECREASED [None]
  - DRUG DOSE OMISSION [None]
  - FALL [None]
  - HEAD INJURY [None]
  - INSOMNIA [None]
